FAERS Safety Report 9871218 (Version 2)
Quarter: 2014Q1

REPORT INFORMATION
  Report Type: Spontaneous
  Country: AT (occurrence: AT)
  Receive Date: 20140205
  Receipt Date: 20140205
  Transmission Date: 20141002
  Serious: Yes (Life-Threatening, Other)
  Sender: FDA-Public Use
  Company Number: PHHY2014AT011793

PATIENT
  Age: 32 Year
  Sex: Female

DRUGS (6)
  1. GILENYA [Suspect]
     Indication: RELAPSING-REMITTING MULTIPLE SCLEROSIS
     Route: 048
     Dates: start: 20131021, end: 20140103
  2. ADJUVIN [Concomitant]
  3. TRITTICO [Concomitant]
  4. MOTILIN [Concomitant]
  5. TAMSULOSIN [Concomitant]
  6. LOVENOX [Concomitant]

REACTIONS (19)
  - Multiple sclerosis relapse [Unknown]
  - Hemiparesis [Unknown]
  - Speech disorder [Unknown]
  - Speech disorder developmental [Unknown]
  - Dysphagia [Unknown]
  - Aphasia [Unknown]
  - Paresis [Unknown]
  - Muscle spasticity [Unknown]
  - Visual acuity reduced [Unknown]
  - Visual impairment [Unknown]
  - Blindness [Unknown]
  - Dysthymic disorder [Unknown]
  - Incontinence [Unknown]
  - Urinary retention [Unknown]
  - Ataxia [Unknown]
  - Nervous system disorder [Unknown]
  - Clumsiness [Unknown]
  - Asthenia [Unknown]
  - JC virus test positive [Unknown]
